FAERS Safety Report 12081817 (Version 1)
Quarter: 2016Q1

REPORT INFORMATION
  Report Type: Spontaneous
  Country: IT (occurrence: IT)
  Receive Date: 20160216
  Receipt Date: 20160216
  Transmission Date: 20160526
  Serious: Yes (Other)
  Sender: FDA-Public Use
  Company Number: IT-BANPHARM-20164658

PATIENT
  Age: 31 Year
  Sex: Female

DRUGS (4)
  1. BUSERELIN [Suspect]
     Active Substance: BUSERELIN
     Dosage: 0.5 ML, BID,
  2. PROGESTERONE UNKNOWN PRODUCT [Suspect]
     Active Substance: PROGESTERONE
     Indication: IN VITRO FERTILISATION
     Dosage: DF 100MG,
  3. BUSERELIN [Suspect]
     Active Substance: BUSERELIN
     Dosage: 0.2 ML, BID,
  4. FOLLITROPIN [Suspect]
     Active Substance: FOLLITROPIN
     Dosage: 350 IU, QD,

REACTIONS (1)
  - Choroidal neovascularisation [Recovered/Resolved]
